FAERS Safety Report 8141452-3 (Version None)
Quarter: 2012Q1

REPORT INFORMATION
  Report Type: 
  Country: None (occurrence: None)
  Receive Date: 20120216
  Receipt Date: 20120213
  Transmission Date: 20120608
  Serious: Yes (Hospitalization)
  Sender: FDA-Public Use
  Company Number: US-VERTEX PHARMACEUTICALS INC.-AE-2012-002201

PATIENT
  Sex: Female

DRUGS (3)
  1. PEGASYS [Concomitant]
     Indication: HEPATITIS C
     Route: 058
     Dates: start: 20111210, end: 20120208
  2. INCIVEK [Suspect]
     Indication: HEPATITIS C
     Route: 048
     Dates: start: 20111210, end: 20120208
  3. RIBAVIRIN [Concomitant]
     Indication: HEPATITIS C
     Dates: start: 20111210, end: 20120208

REACTIONS (2)
  - BLOOD COUNT ABNORMAL [None]
  - CONFUSIONAL STATE [None]
